FAERS Safety Report 8422180-3 (Version None)
Quarter: 2012Q2

REPORT INFORMATION
  Report Type: 
  Country: None (occurrence: None)
  Receive Date: 20120608
  Receipt Date: 20120601
  Transmission Date: 20120825
  Serious: Yes (Hospitalization)
  Sender: FDA-Public Use
  Company Number: US-CELGENEUS-163-21880-10071409

PATIENT
  Sex: Male
  Weight: 93.978 kg

DRUGS (6)
  1. ADVAIR DISKUS 100/50 [Concomitant]
     Route: 065
  2. BORTEZOMIB [Suspect]
     Dosage: 1.3 MILLIGRAM
     Route: 041
     Dates: start: 20100427, end: 20100709
  3. REVLIMID [Suspect]
     Dosage: 10 MILLIGRAM
     Route: 048
     Dates: start: 20100427, end: 20100713
  4. ATENOLOL [Concomitant]
     Route: 065
  5. PREDNISONE TAB [Concomitant]
     Route: 065
  6. COUMADIN [Concomitant]
     Route: 065

REACTIONS (2)
  - BLOOD PHOSPHORUS DECREASED [None]
  - PNEUMONIA [None]
